FAERS Safety Report 24878881 (Version 1)
Quarter: 2025Q1

REPORT INFORMATION
  Report Type: Spontaneous
  Country: TW (occurrence: TW)
  Receive Date: 20250123
  Receipt Date: 20250123
  Transmission Date: 20250408
  Serious: Yes (Other)
  Sender: RECORDATI
  Company Number: TW-RECORDATI RARE DISEASES-2025000288

PATIENT

DRUGS (1)
  1. CARBAGLU [Suspect]
     Active Substance: CARGLUMIC ACID
     Indication: Methylmalonic acidaemia

REACTIONS (1)
  - Liver transplant [Unknown]
